FAERS Safety Report 10396339 (Version 2)
Quarter: 2015Q2

REPORT INFORMATION
  Report Type: Spontaneous
  Country: US (occurrence: US)
  Receive Date: 20140820
  Receipt Date: 20150601
  Transmission Date: 20150821
  Serious: Yes (Hospitalization, Other)
  Sender: FDA-Public Use
  Company Number: US-BAYER-2014-122671

PATIENT
  Age: 26 Year
  Sex: Female

DRUGS (9)
  1. GIANVI [Suspect]
     Active Substance: DROSPIRENONE\ETHINYL ESTRADIOL
     Dosage: UNK
     Dates: start: 200501, end: 200503
  2. NAPROSYN [Concomitant]
     Active Substance: NAPROXEN
  3. AUGMENTIN [Concomitant]
     Active Substance: AMOXICILLIN\CLAVULANATE POTASSIUM
  4. YASMIN [Suspect]
     Active Substance: DROSPIRENONE\ETHINYL ESTRADIOL
     Dosage: UNK
     Dates: start: 200501, end: 200503
  5. REPLAS [Concomitant]
     Active Substance: DEXTROSE\SODIUM CHLORIDE\SODIUM LACTATE
  6. PHENERGAN [Concomitant]
     Active Substance: PROMETHAZINE HYDROCHLORIDE
  7. OCELLA [Suspect]
     Active Substance: DROSPIRENONE\ETHINYL ESTRADIOL
     Dosage: UNK
     Dates: start: 200501, end: 200503
  8. TORADOL [Concomitant]
     Active Substance: KETOROLAC TROMETHAMINE
  9. YAZ [Suspect]
     Active Substance: DROSPIRENONE\ETHINYL ESTRADIOL
     Dosage: UNK
     Dates: start: 200501, end: 200503

REACTIONS (7)
  - Pain [None]
  - Transverse sinus thrombosis [None]
  - Cerebrovascular accident [None]
  - Injury [None]
  - Superior sagittal sinus thrombosis [None]
  - Cholelithiasis [None]
  - Emotional distress [None]

NARRATIVE: CASE EVENT DATE: 200503
